FAERS Safety Report 7459758-X (Version None)
Quarter: 2011Q2

REPORT INFORMATION
  Report Type: 
  Country: None (occurrence: None)
  Receive Date: 20110504
  Receipt Date: 20110504
  Transmission Date: 20111010
  Serious: Yes (Life-Threatening)
  Sender: FDA-Public Use
  Company Number: None

PATIENT
  Sex: Female

DRUGS (1)
  1. LISINOPRIL [Suspect]
     Indication: HYPERTENSION
     Dosage: 10MG QD PO
     Route: 048
     Dates: start: 20060314, end: 20110301

REACTIONS (2)
  - HYPONATRAEMIA [None]
  - BLOOD ELECTROLYTES ABNORMAL [None]
